FAERS Safety Report 10191270 (Version 1)
Quarter: 2014Q2

REPORT INFORMATION
  Report Type: Spontaneous
  Country: US (occurrence: AU)
  Receive Date: 20140523
  Receipt Date: 20140523
  Transmission Date: 20141212
  Serious: Yes (Other)
  Sender: FDA-Public Use
  Company Number: 2014SP002872

PATIENT
  Age: 2 Year
  Sex: Female
  Weight: 12.7 kg

DRUGS (4)
  1. CYTARABINE [Suspect]
     Indication: ACUTE MYELOID LEUKAEMIA
  2. FLUDARABINE [Suspect]
     Indication: ACUTE MYELOID LEUKAEMIA
  3. DAUNORUBICIN [Suspect]
     Indication: ACUTE MYELOID LEUKAEMIA
  4. GRANULOCYTE COLONY-STIMULATING FACTOR NOS [Suspect]
     Indication: ACUTE MYELOID LEUKAEMIA

REACTIONS (2)
  - Disease progression [Unknown]
  - Acute myeloid leukaemia [Unknown]
